FAERS Safety Report 5377304-1 (Version None)
Quarter: 2007Q3

REPORT INFORMATION
  Report Type: 
  Country: None (occurrence: None)
  Receive Date: 20070703
  Receipt Date: 20070702
  Transmission Date: 20080115
  Serious: Yes (Other)
  Sender: FDA-Public Use
  Company Number: DEWYE887420JUN07

PATIENT
  Sex: Female

DRUGS (4)
  1. TREVILOR [Interacting]
     Indication: DEPRESSION
     Dosage: QUESTIONABLE 75 MG/D
     Route: 048
  2. DIAZEPAM [Concomitant]
     Dosage: DAILY
     Route: 048
  3. FLUOROURACIL [Suspect]
     Dosage: UNKNOWN
  4. CYCLOPHOSPHAMIDE [Interacting]
     Dosage: UNKNOWN

REACTIONS (4)
  - BREAST CANCER FEMALE [None]
  - CONDITION AGGRAVATED [None]
  - DEPRESSION [None]
  - DRUG INTERACTION [None]
